FAERS Safety Report 8952849 (Version 2)
Quarter: 2012Q4

REPORT INFORMATION
  Report Type: 
  Country: TR (occurrence: TR)
  Receive Date: 20121203
  Receipt Date: 20121217
  Transmission Date: 20130627
  Serious: Yes (Other)
  Sender: FDA-Public Use
  Company Number: PHHY2010TR094905

PATIENT
  Sex: Female

DRUGS (2)
  1. BUDESONIDE [Suspect]
     Route: 064
  2. FORMOTEROL [Suspect]
     Route: 064

REACTIONS (3)
  - Premature baby [Unknown]
  - Apgar score abnormal [Unknown]
  - Foetal exposure during pregnancy [Unknown]
